FAERS Safety Report 16144997 (Version 1)
Quarter: 2019Q2

REPORT INFORMATION
  Report Type: Spontaneous
  Country: GB (occurrence: GB)
  Receive Date: 20190402
  Receipt Date: 20190402
  Transmission Date: 20190711
  Serious: Yes (Other)
  Sender: FDA-Public Use
  Company Number: GB-DEXPHARM-20190225

PATIENT
  Age: 53 Year
  Sex: Male

DRUGS (9)
  1. HYOSCINE [Concomitant]
     Active Substance: SCOPOLAMINE
     Indication: SALIVARY HYPERSECRETION
  2. LORAZEPAM. [Concomitant]
     Active Substance: LORAZEPAM
  3. AMISULPRIDE [Concomitant]
     Active Substance: AMISULPRIDE
     Indication: DRUG THERAPY ENHANCEMENT
     Dates: start: 2010
  4. ZAPONEX [Interacting]
     Active Substance: CLOZAPINE
     Route: 048
     Dates: start: 20090717
  5. OMEPRAZOLE. [Suspect]
     Active Substance: OMEPRAZOLE
     Dates: start: 2010, end: 2017
  6. ATORVASTATIN [Concomitant]
     Active Substance: ATORVASTATIN
  7. PHENOXYMETHYLPENICILLIN [Concomitant]
     Active Substance: PENICILLIN V
  8. DIAZEPAM. [Concomitant]
     Active Substance: DIAZEPAM
  9. PANTOPRAZOLE [Concomitant]
     Active Substance: PANTOPRAZOLE
     Dates: start: 2017

REACTIONS (6)
  - Drug interaction [Unknown]
  - Influenza [Not Recovered/Not Resolved]
  - Salivary hypersecretion [Unknown]
  - Weight increased [Unknown]
  - Antipsychotic drug level decreased [Not Recovered/Not Resolved]
  - Mental impairment [Unknown]

NARRATIVE: CASE EVENT DATE: 2016
